FAERS Safety Report 19670176 (Version 1)
Quarter: 2021Q3

REPORT INFORMATION
  Report Type: Other
  Country: CN (occurrence: CN)
  Receive Date: 20210806
  Receipt Date: 20210806
  Transmission Date: 20211014
  Serious: Yes (Other)
  Sender: FDA-Public Use
  Company Number: CN-ROCHE-2882762

PATIENT

DRUGS (5)
  1. NIVOLUMAB [Suspect]
     Active Substance: NIVOLUMAB
     Indication: LUNG NEOPLASM MALIGNANT
     Route: 065
  2. AVELUMAB [Suspect]
     Active Substance: AVELUMAB
     Indication: LUNG NEOPLASM MALIGNANT
     Route: 065
  3. DURVALUMAB. [Suspect]
     Active Substance: DURVALUMAB
     Indication: LUNG NEOPLASM MALIGNANT
     Route: 065
  4. ATEZOLIZUMAB. [Suspect]
     Active Substance: ATEZOLIZUMAB
     Indication: LUNG NEOPLASM MALIGNANT
     Route: 065
  5. PEMBROLIZUMAB. [Suspect]
     Active Substance: PEMBROLIZUMAB
     Indication: LUNG NEOPLASM MALIGNANT
     Route: 065

REACTIONS (15)
  - Skin reaction [Unknown]
  - Colitis [Unknown]
  - Adrenal insufficiency [Unknown]
  - Encephalitis [Unknown]
  - Myositis [Unknown]
  - Neurotoxicity [Unknown]
  - Hyperthyroidism [Unknown]
  - Hepatitis [Unknown]
  - Gastrointestinal disorder [Unknown]
  - Hypophysitis [Unknown]
  - Myasthenia gravis [Unknown]
  - Pulmonary toxicity [Unknown]
  - Diabetes mellitus [Unknown]
  - Myocarditis [Unknown]
  - Haematotoxicity [Unknown]
